FAERS Safety Report 4649552-7 (Version None)
Quarter: 2005Q2

REPORT INFORMATION
  Report Type: 
  Country: None (occurrence: None)
  Receive Date: 20050427
  Receipt Date: 20050414
  Transmission Date: 20051028
  Serious: Yes (Hospitalization, Other)
  Sender: FDA-Public Use
  Company Number: 2005060992

PATIENT
  Age: 42 Year
  Sex: Female
  Weight: 69.8539 kg

DRUGS (4)
  1. ZYRTEC [Suspect]
     Indication: URTICARIA
     Dosage: 10 MG
     Dates: start: 20050413, end: 20050413
  2. PAROXETINE HCL [Concomitant]
  3. ACETAMINOPHEN [Concomitant]
  4. IBUPROFEN [Concomitant]

REACTIONS (6)
  - CONDITION AGGRAVATED [None]
  - DYSPNOEA [None]
  - PAIN [None]
  - PRURITUS GENERALISED [None]
  - SWELLING FACE [None]
  - URTICARIA GENERALISED [None]
